FAERS Safety Report 12427662 (Version 1)
Quarter: 2016Q2

REPORT INFORMATION
  Report Type: Spontaneous
  Country: US (occurrence: None)
  Receive Date: 20160601
  Receipt Date: 20160601
  Transmission Date: 20160815
  Serious: No
  Sender: FDA-Public Use
  Company Number: None

PATIENT
  Age: 75 Year
  Sex: Female
  Weight: 50.35 kg

DRUGS (1)
  1. HUMALOG PEN [Suspect]
     Active Substance: INSULIN LISPRO

REACTIONS (1)
  - Device malfunction [None]

NARRATIVE: CASE EVENT DATE: 20160303
